FAERS Safety Report 4947468-X (Version None)
Quarter: 2006Q1

REPORT INFORMATION
  Report Type: 
  Country: None (occurrence: None)
  Receive Date: 20060313
  Receipt Date: 20060301
  Transmission Date: 20060701
  Serious: Yes (Hospitalization, Other)
  Sender: FDA-Public Use
  Company Number: 2006033126

PATIENT
  Sex: 0

DRUGS (2)
  1. XANAX [Suspect]
     Indication: ILL-DEFINED DISORDER
  2. LYRICA [Suspect]
     Indication: ILL-DEFINED DISORDER
     Dosage: 150 MG (75MG, 2 IN 1 D),

REACTIONS (3)
  - DIZZINESS [None]
  - PNEUMONIA ASPIRATION [None]
  - ROAD TRAFFIC ACCIDENT [None]
